FAERS Safety Report 4565168-5 (Version None)
Quarter: 2005Q1

REPORT INFORMATION
  Report Type: 
  Country: None (occurrence: None)
  Receive Date: 20050127
  Receipt Date: 20050127
  Transmission Date: 20050727
  Serious: Yes (Death, Life-Threatening, Hospitalization)
  Sender: FDA-Public Use
  Company Number: None

PATIENT
  Age: 81 Year
  Sex: Male
  Weight: 61.2 kg

DRUGS (19)
  1. PRIMAXIN [Suspect]
  2. NPH INSULIN [Concomitant]
  3. MULTI-VITAMINS [Concomitant]
  4. ASCORBIC ACID [Concomitant]
  5. INSULIN HUMAN REGULAR [Concomitant]
  6. HALOPERIDOL [Concomitant]
  7. METOPROLOL [Concomitant]
  8. DOCUSATE [Concomitant]
  9. ACETAMINOPHEN [Concomitant]
  10. DONEPEZIL HCL [Concomitant]
  11. CITALOPRAM [Concomitant]
  12. LISINOPRIL [Concomitant]
  13. TOPIRAMATE [Concomitant]
  14. SIMVASTATIN [Concomitant]
  15. OMEPRAZOLE [Concomitant]
  16. HEPARIN [Concomitant]
  17. CEFEPIME [Concomitant]
  18. METRONIDAZOLE HCL [Concomitant]
  19. PRIMAXIN [Concomitant]

REACTIONS (1)
  - CONVULSION [None]
